FAERS Safety Report 13498990 (Version 1)
Quarter: 2017Q2

REPORT INFORMATION
  Report Type: Spontaneous
  Country: US (occurrence: US)
  Receive Date: 20170429
  Receipt Date: 20170429
  Transmission Date: 20170830
  Serious: Yes (Hospitalization)
  Sender: FDA-Public Use
  Company Number: None

PATIENT
  Age: 74 Year
  Sex: Male
  Weight: 69.75 kg

DRUGS (8)
  1. COENZYME Q-10 [Concomitant]
  2. MULTI-VITAMINS [Concomitant]
  3. FISH OIL [Concomitant]
     Active Substance: FISH OIL
  4. ALLOPURINAL [Concomitant]
  5. SUPREP BOWEL PREP [Suspect]
     Active Substance: MAGNESIUM SULFATE\POTASSIUM SULFATE\SODIUM SULFATE
     Indication: COLONOSCOPY
     Dates: start: 20170403
  6. METOPROLOL. [Concomitant]
     Active Substance: METOPROLOL
  7. ASPIRIN. [Concomitant]
     Active Substance: ASPIRIN
  8. GARLIC. [Concomitant]
     Active Substance: GARLIC

REACTIONS (4)
  - Muscle rigidity [None]
  - Abdominal distension [None]
  - Dyskinesia [None]
  - Dyspnoea [None]

NARRATIVE: CASE EVENT DATE: 20170403
